FAERS Safety Report 7319404-2 (Version None)
Quarter: 2011Q1

REPORT INFORMATION
  Report Type: 
  Country: None (occurrence: None)
  Receive Date: 20110228
  Receipt Date: 20100308
  Transmission Date: 20110831
  Serious: No
  Sender: FDA-Public Use
  Company Number: A0848879A

PATIENT
  Age: 40 Year
  Sex: Male

DRUGS (4)
  1. ABILIFY [Concomitant]
  2. LAMOTRIGINE [Suspect]
     Dates: start: 20080501, end: 20100201
  3. EFFEXOR [Concomitant]
  4. LAMICTAL [Suspect]
     Indication: BIPOLAR DISORDER
     Route: 048
     Dates: start: 20071001, end: 20080501

REACTIONS (1)
  - RASH [None]
